FAERS Safety Report 21054744 (Version 2)
Quarter: 2022Q3

REPORT INFORMATION
  Report Type: Spontaneous
  Country: US (occurrence: US)
  Receive Date: 20220707
  Receipt Date: 20220808
  Transmission Date: 20221027
  Serious: No
  Sender: FDA-Public Use
  Company Number: US-THERATECHNOLOGIES INC.-2022-THE-TES-000171

PATIENT

DRUGS (1)
  1. EGRIFTA SV [Suspect]
     Active Substance: TESAMORELIN ACETATE
     Indication: Type 1 diabetes mellitus
     Dosage: 1.4 MG, QD
     Route: 058

REACTIONS (2)
  - Myalgia [Recovered/Resolved]
  - Off label use [Unknown]
